FAERS Safety Report 25003073 (Version 1)
Quarter: 2025Q1

REPORT INFORMATION
  Report Type: Spontaneous
  Country: US (occurrence: US)
  Receive Date: 20250224
  Receipt Date: 20250224
  Transmission Date: 20250409
  Serious: No
  Sender: SUNOVION
  Company Number: US-SMPA-2024SPA007017AA

PATIENT

DRUGS (1)
  1. GEMTESA [Suspect]
     Active Substance: VIBEGRON
     Dosage: 75 MG, QD (TAKE 1 TABLET BY MOUTH ONCE A DAY WITH OR WITHOUT FOOD)
     Route: 048

REACTIONS (1)
  - Irritable bowel syndrome [Unknown]
